FAERS Safety Report 9637045 (Version 2)
Quarter: 2013Q4

REPORT INFORMATION
  Report Type: Report from Study
  Country: DE (occurrence: DE)
  Receive Date: 20131022
  Receipt Date: 20131114
  Transmission Date: 20140711
  Serious: Yes (Life-Threatening, Hospitalization, Other)
  Sender: FDA-Public Use
  Company Number: DE-SHIRE-ALL1-2013-07072

PATIENT
  Age: 13 Year
  Sex: Male

DRUGS (7)
  1. IDURSULFASE [Suspect]
     Indication: MUCOPOLYSACCHARIDOSIS II
     Dosage: UNK UNK, UNKNOWN
     Route: 041
     Dates: start: 20061129, end: 20090323
  2. MELATONIN [Concomitant]
     Indication: SLEEP DISORDER
     Dosage: 6.0 MG, UNKNOWN (DAILY)
     Route: 048
     Dates: start: 200702
  3. CHLORALDURAT [Concomitant]
     Indication: SLEEP DISORDER
     Dosage: 250 MG, UNKNOWN (DAILY)
     Route: 048
     Dates: start: 200702
  4. MUCOCLEAR [Concomitant]
     Indication: SLEEP APNOEA SYNDROME
     Dosage: UNK, UNKNOWN
     Route: 055
  5. MOVICOL JUNIOR NEUTRAL [Concomitant]
     Indication: CONSTIPATION
     Dosage: UNK, UNKNOWN
     Route: 065
  6. IBUPROFEN [Concomitant]
     Indication: PAIN
     Dosage: 230 MG, 1X/DAY:QD
     Route: 048
  7. PARACETAMOL [Concomitant]
     Indication: PAIN
     Dosage: 230 MG, 1X/DAY:QD
     Route: 048

REACTIONS (1)
  - Grand mal convulsion [Unknown]
